FAERS Safety Report 5793282-5 (Version None)
Quarter: 2008Q2

REPORT INFORMATION
  Report Type: 
  Country: None (occurrence: None)
  Receive Date: 20080627
  Receipt Date: 20080623
  Transmission Date: 20081010
  Serious: Yes (Hospitalization)
  Sender: FDA-Public Use
  Company Number: JP-ASTRAZENECA-2008AP03192

PATIENT
  Age: 25966 Day
  Sex: Female

DRUGS (11)
  1. CRESTOR [Suspect]
     Indication: HYPERLIPIDAEMIA
     Route: 048
     Dates: start: 20080416, end: 20080422
  2. BAKTAR [Suspect]
     Indication: PNEUMOCYSTIS JIROVECI PNEUMONIA
     Dosage: 960 MG/DAY ON MONDAY AND THURSDAY
     Route: 048
     Dates: start: 20080315, end: 20080421
  3. PREDNISOLONE [Concomitant]
     Indication: TEMPORAL ARTERITIS
     Dosage: 35 MG/DAY
     Route: 048
     Dates: start: 20080315, end: 20080401
  4. PREDNISOLONE [Concomitant]
     Dosage: 30 MG/DAY
     Route: 048
     Dates: start: 20080402, end: 20080415
  5. PREDNISOLONE [Concomitant]
     Dosage: 25 MG/DAY
     Route: 048
     Dates: start: 20080416, end: 20080506
  6. LANSOPRAZOLE [Concomitant]
     Indication: GASTRIC ULCER
     Route: 048
     Dates: start: 20080315, end: 20080505
  7. BONALON [Concomitant]
     Indication: OSTEOPOROSIS
     Route: 048
     Dates: start: 20080320
  8. MYSLEE [Concomitant]
     Indication: INSOMNIA
     Route: 048
     Dates: start: 20080416, end: 20080422
  9. LENDORMIN D [Concomitant]
     Indication: INSOMNIA
     Route: 048
     Dates: start: 20080423, end: 20080512
  10. LEVOFLOXACIN [Concomitant]
     Indication: INFECTION PROPHYLAXIS
     Dosage: NUMBER OF SEPARATE DOSAGES UNKNOWN
     Route: 048
     Dates: start: 20080424, end: 20080429
  11. JUVELA N [Concomitant]
     Indication: HYPERLIPIDAEMIA
     Route: 048
     Dates: start: 20080424

REACTIONS (1)
  - NEUTROPENIA [None]
